FAERS Safety Report 12887290 (Version 1)
Quarter: 2016Q4

REPORT INFORMATION
  Report Type: Report from Study
  Country: US (occurrence: US)
  Receive Date: 20161026
  Receipt Date: 20161026
  Transmission Date: 20170207
  Serious: Yes (Life-Threatening, Other)
  Sender: FDA-Public Use
  Company Number: US-JAZZ-2014-US-019355

PATIENT
  Age: 3 Year
  Sex: Female
  Weight: 12.9 kg

DRUGS (20)
  1. DEFIBROTIDE (INV) [Suspect]
     Active Substance: DEFIBROTIDE SODIUM
     Indication: VENOOCCLUSIVE LIVER DISEASE
     Dosage: 340 MG (25 MG/KG/DAY)
     Route: 042
     Dates: start: 20140123, end: 20140213
  2. VORICONAZOLE. [Concomitant]
     Active Substance: VORICONAZOLE
     Dosage: UNK
     Dates: start: 20140227
  3. VANCOMYCIN [Concomitant]
     Active Substance: VANCOMYCIN
  4. MEROPENEM. [Concomitant]
     Active Substance: MEROPENEM
  5. POTASSIUM [Concomitant]
     Active Substance: POTASSIUM
  6. ZANTAC [Concomitant]
     Active Substance: RANITIDINE HYDROCHLORIDE
     Dosage: 12.9 MG, Q 8 HOUR
     Route: 042
  7. AMBISOME [Concomitant]
     Active Substance: AMPHOTERICIN B
     Dosage: UNK
     Dates: start: 20140227
  8. ATROPINE. [Concomitant]
     Active Substance: ATROPINE
     Dosage: DOSAGE WAS ONE DOSE
  9. ZOFRAN [Concomitant]
     Active Substance: ONDANSETRON HYDROCHLORIDE
     Dosage: 4 MG, PRN Q 8 HRS, NAUSEA
     Route: 048
  10. DIFLUCAN [Concomitant]
     Active Substance: FLUCONAZOLE
  11. EPINEPHRINE. [Concomitant]
     Active Substance: EPINEPHRINE
     Dosage: DOSAGE WAS ONE DOSE
  12. METHYLENE BLUE. [Concomitant]
     Active Substance: METHYLENE BLUE
  13. EPINEPHRINE. [Concomitant]
     Active Substance: EPINEPHRINE
     Dosage: DOSAGE WAS 0.1 MCG/KG/MIN
  14. CALCIUM [Concomitant]
     Active Substance: CALCIUM
  15. HYDROCORTISONE. [Concomitant]
     Active Substance: HYDROCORTISONE
  16. NITRIC OXIDE. [Concomitant]
     Active Substance: NITRIC OXIDE
  17. ACICLOVIR [Concomitant]
     Active Substance: ACYCLOVIR
  18. AMIKACIN [Concomitant]
     Active Substance: AMIKACIN
  19. SODIUM BICARBONATE. [Concomitant]
     Active Substance: SODIUM BICARBONATE
     Dosage: DOSAGE WAS ONE DOSE
  20. COLACE [Concomitant]
     Active Substance: DOCUSATE SODIUM
     Dosage: 20 MG, PRN
     Route: 048

REACTIONS (3)
  - Pneumothorax [Recovered/Resolved]
  - Atelectasis [Recovered/Resolved]
  - Postoperative thoracic procedure complication [Recovered/Resolved]

NARRATIVE: CASE EVENT DATE: 20140227
